FAERS Safety Report 21070249 (Version 1)
Quarter: 2022Q3

REPORT INFORMATION
  Report Type: Report from Study
  Country: US (occurrence: US)
  Receive Date: 20220712
  Receipt Date: 20220712
  Transmission Date: 20221027
  Serious: Yes (Life-Threatening, Hospitalization, Other)
  Sender: FDA-Public Use
  Company Number: US-ABBVIE-22P-163-4462008-00

PATIENT
  Age: 67 Year
  Sex: Male
  Weight: 105.6 kg

DRUGS (2)
  1. IBRUTINIB [Suspect]
     Active Substance: IBRUTINIB
     Indication: Chronic lymphocytic leukaemia
     Dosage: 15 CYCLES
     Route: 048
     Dates: start: 20220616, end: 20220616
  2. OBINUTUZUMAB [Concomitant]
     Active Substance: OBINUTUZUMAB
     Indication: Chronic lymphocytic leukaemia
     Route: 042
     Dates: start: 20220616, end: 20220616

REACTIONS (2)
  - Infusion related reaction [Not Recovered/Not Resolved]
  - Tumour lysis syndrome [Not Recovered/Not Resolved]

NARRATIVE: CASE EVENT DATE: 20220616
